FAERS Safety Report 24067647 (Version 1)
Quarter: 2024Q3

REPORT INFORMATION
  Report Type: Spontaneous
  Country: GB (occurrence: GB)
  Receive Date: 20240710
  Receipt Date: 20240710
  Transmission Date: 20241017
  Serious: Yes (Other)
  Sender: RANBAXY
  Company Number: GB-SUN PHARMACEUTICAL INDUSTRIES LTD-2024RR-455864

PATIENT
  Age: 79 Year
  Sex: Female
  Weight: 73 kg

DRUGS (3)
  1. CODEINE [Suspect]
     Active Substance: CODEINE
     Indication: Ill-defined disorder
     Dosage: UNK
     Route: 065
     Dates: start: 20240624
  2. CODEINE PHOSPHATE [Concomitant]
     Active Substance: CODEINE PHOSPHATE
     Indication: Ill-defined disorder
     Dosage: ONE OR TWO TABLETS TO BE TAKEN FOUR TO SIX HOUR...
     Route: 065
     Dates: start: 20240514, end: 20240611
  3. LOSARTAN [Concomitant]
     Active Substance: LOSARTAN
     Indication: Ill-defined disorder
     Dosage: TAKE TWO TABLET ONCE A DAY
     Route: 065
     Dates: start: 20230109

REACTIONS (1)
  - Depression [Recovered/Resolved]

NARRATIVE: CASE EVENT DATE: 20240624
